FAERS Safety Report 9529547 (Version 3)
Quarter: 2013Q3

REPORT INFORMATION
  Report Type: Report from Study
  Country: BR (occurrence: BR)
  Receive Date: 20130917
  Receipt Date: 20130920
  Transmission Date: 20140515
  Serious: Yes (Life-Threatening, Hospitalization, Other)
  Sender: FDA-Public Use
  Company Number: PHHO2013BR005547

PATIENT
  Age: 60 Year
  Sex: Male
  Weight: 76.3 kg

DRUGS (2)
  1. MYCOPHENOLIC ACID [Suspect]
     Indication: RENAL TRANSPLANT
     Dosage: 720 MG, BID
     Route: 048
     Dates: start: 20121007, end: 20130410
  2. SIMULECT [Suspect]
     Indication: RENAL TRANSPLANT
     Dosage: 20 MG, ONCE/SINGLE
     Route: 042
     Dates: start: 20121006

REACTIONS (9)
  - Septic shock [Recovered/Resolved]
  - Bronchopneumonia [Recovered/Resolved]
  - Sepsis [Recovered/Resolved]
  - Device related infection [Recovered/Resolved]
  - Extrapulmonary tuberculosis [Not Recovered/Not Resolved]
  - Mycobacterial infection [Recovering/Resolving]
  - Cellulitis [Recovered/Resolved with Sequelae]
  - Complications of transplanted kidney [Recovered/Resolved with Sequelae]
  - Supraventricular tachycardia [Recovered/Resolved]
